FAERS Safety Report 11528595 (Version 1)
Quarter: 2015Q3

REPORT INFORMATION
  Report Type: Spontaneous
  Country: FR (occurrence: None)
  Receive Date: 20150917
  Receipt Date: 20150917
  Transmission Date: 20151125
  Serious: Yes (Hospitalization, Other)
  Sender: FDA-Public Use
  Company Number: FR-ZYDUS-009020

PATIENT
  Age: 85 Year
  Sex: Male

DRUGS (1)
  1. AMIODARONE (AMIODARONE) [Suspect]
     Active Substance: AMIODARONE
     Indication: ATRIAL FIBRILLATION
     Dosage: 200-MG-1.0DAYS

REACTIONS (7)
  - Fall [None]
  - Cholestasis [None]
  - Hepatocellular injury [None]
  - Toxicity to various agents [None]
  - Photophobia [None]
  - Abdominal pain [None]
  - Pigmentation disorder [None]
